FAERS Safety Report 8962119 (Version 2)
Quarter: 2012Q4

REPORT INFORMATION
  Report Type: 
  Country: US (occurrence: US)
  Receive Date: 20121212
  Receipt Date: 20121226
  Transmission Date: 20130627
  Serious: Yes (Other)
  Sender: FDA-Public Use
  Company Number: US-PFIZER INC-2012312837

PATIENT
  Age: 40 Year
  Sex: Female
  Weight: 95.24 kg

DRUGS (4)
  1. LYRICA [Suspect]
     Indication: TRIGEMINAL NEURALGIA
     Dosage: 300 mg, 3x/day
     Route: 048
     Dates: start: 2008, end: 201211
  2. LYRICA [Suspect]
     Indication: NERVE DAMAGE
  3. LIPITOR [Suspect]
     Indication: CHOLESTEROL HIGH
     Dosage: UNK, as needed
     Dates: start: 201209
  4. INSULIN [Concomitant]
     Indication: BORDERLINE DIABETES
     Dosage: UNK

REACTIONS (15)
  - Blood cholesterol increased [Not Recovered/Not Resolved]
  - Withdrawal syndrome [Not Recovered/Not Resolved]
  - Anxiety [Not Recovered/Not Resolved]
  - Drug dependence [Not Recovered/Not Resolved]
  - Activities of daily living impaired [Not Recovered/Not Resolved]
  - Diarrhoea [Not Recovered/Not Resolved]
  - Pain [Not Recovered/Not Resolved]
  - Flushing [Not Recovered/Not Resolved]
  - Night sweats [Not Recovered/Not Resolved]
  - Malaise [Not Recovered/Not Resolved]
  - Insomnia [Not Recovered/Not Resolved]
  - Facial pain [Unknown]
  - Feeling abnormal [Unknown]
  - Incorrect dose administered [Recovered/Resolved]
  - Inappropriate schedule of drug administration [Not Recovered/Not Resolved]
